FAERS Safety Report 16991950 (Version 2)
Quarter: 2019Q4

REPORT INFORMATION
  Report Type: Spontaneous
  Country: US (occurrence: US)
  Receive Date: 20191104
  Receipt Date: 20191202
  Transmission Date: 20200122
  Serious: Yes (Hospitalization)
  Sender: FDA-Public Use
  Company Number: US-SA-2019SA302833

PATIENT
  Sex: Female
  Weight: 61.5 kg

DRUGS (24)
  1. ACETYLSALICYLIC ACID [Suspect]
     Active Substance: ASPIRIN
     Dosage: 100 MG, QD
     Route: 048
     Dates: start: 20190926, end: 20190926
  2. AMLODIPINE [Concomitant]
     Active Substance: AMLODIPINE BESYLATE
     Dosage: 5 MG, UNK
     Route: 065
     Dates: start: 20190513, end: 20191008
  3. METOPROLOL. [Concomitant]
     Active Substance: METOPROLOL
     Dosage: 25 MG, UNK
     Route: 065
  4. FENTANYL. [Concomitant]
     Active Substance: FENTANYL
     Indication: ADVERSE EVENT
     Dosage: 25 MG, UNK
     Route: 065
     Dates: start: 20191008, end: 20191008
  5. ACETYLSALICYLIC ACID [Suspect]
     Active Substance: ASPIRIN
     Dosage: 100 MG, QD
     Route: 048
     Dates: start: 20190819, end: 20190819
  6. PHENYLEPHRINE [Concomitant]
     Active Substance: PHENYLEPHRINE HYDROCHLORIDE
     Indication: ADVERSE EVENT
     Dosage: 400 UG, UNK
     Route: 065
     Dates: start: 20191008, end: 20191008
  7. PLAVIX [Suspect]
     Active Substance: CLOPIDOGREL BISULFATE
     Dosage: 75 MG, QD
     Route: 048
     Dates: start: 20190731, end: 20190731
  8. ONDANSETRON [Concomitant]
     Active Substance: ONDANSETRON
     Indication: ADVERSE EVENT
     Dosage: 4 MG, UNK
     Route: 065
     Dates: start: 20191008, end: 20191008
  9. ACETYLSALICYLIC ACID [Suspect]
     Active Substance: ASPIRIN
     Dosage: 100 MG, QD
     Route: 048
     Dates: start: 20190801, end: 20190818
  10. ESCITALOPRAM [Concomitant]
     Active Substance: ESCITALOPRAM OXALATE
     Indication: PROPHYLAXIS
     Dosage: 10 MG, UNK
     Route: 065
     Dates: start: 20190915
  11. EPHEDRINE. [Concomitant]
     Active Substance: EPHEDRINE
     Indication: ADVERSE EVENT
     Dosage: 25 MG, UNK
     Route: 065
     Dates: start: 20191008, end: 20191008
  12. LIDOCAINE. [Concomitant]
     Active Substance: LIDOCAINE
     Indication: ADVERSE EVENT
     Dosage: 70 MG, UNK
     Route: 065
     Dates: start: 20191008, end: 20191008
  13. PLAVIX [Suspect]
     Active Substance: CLOPIDOGREL BISULFATE
     Dosage: 75 MG, QD
     Route: 048
     Dates: start: 20190819, end: 20190819
  14. ACETYLSALICYLIC ACID [Suspect]
     Active Substance: ASPIRIN
     Dosage: 100 MG, QD
     Route: 048
     Dates: start: 20190731, end: 20190731
  15. NITROGLYCERINE [Concomitant]
     Active Substance: NITROGLYCERIN
     Indication: ADVERSE EVENT
     Dosage: 0.5 MG, UNK
     Route: 065
     Dates: start: 20191008, end: 20191008
  16. PROPOFOL. [Concomitant]
     Active Substance: PROPOFOL
     Indication: ADVERSE EVENT
     Dosage: 200 MG, UNK
     Route: 065
     Dates: start: 20191008, end: 20191008
  17. ACETYLSALICYLIC ACID [Suspect]
     Active Substance: ASPIRIN
     Dosage: 100 MG, QD
     Route: 048
     Dates: start: 20190925, end: 20190925
  18. ATORVASTATIN [Concomitant]
     Active Substance: ATORVASTATIN
     Dosage: 40 MG, UNK
     Route: 065
     Dates: start: 20190513
  19. OMNIPAQUE [Concomitant]
     Active Substance: IOHEXOL
     Dosage: 110 UNK, UNK
     Route: 065
     Dates: start: 20191008, end: 20191008
  20. POTASSIUM CHLORIDE. [Concomitant]
     Active Substance: POTASSIUM CHLORIDE
     Indication: ADVERSE EVENT
     Dosage: 20 UNK, UNK
     Route: 065
     Dates: start: 20191008, end: 20191008
  21. CEFAZOLIN [Concomitant]
     Active Substance: CEFAZOLIN
     Indication: ADVERSE EVENT
     Dosage: 1 G, UNK
     Route: 065
     Dates: start: 20191008, end: 20191008
  22. ISOVUE 370 [Concomitant]
     Active Substance: IOPAMIDOL
     Indication: ADVERSE EVENT
     Dosage: 100 UNK, UNK
     Route: 065
     Dates: start: 20190904, end: 20190904
  23. PLAVIX [Suspect]
     Active Substance: CLOPIDOGREL BISULFATE
     Dosage: 75 MG, QD
     Route: 048
     Dates: start: 20190801, end: 20190818
  24. ACETYLSALICYLIC ACID [Suspect]
     Active Substance: ASPIRIN
     Dosage: 100 MG, QD
     Route: 048
     Dates: start: 20190820, end: 20190924

REACTIONS (2)
  - Cerebral artery stent insertion [Recovered/Resolved]
  - Ischaemic stroke [Unknown]

NARRATIVE: CASE EVENT DATE: 20191008
